FAERS Safety Report 15895224 (Version 2)
Quarter: 2019Q1

REPORT INFORMATION
  Report Type: Spontaneous
  Country: GB (occurrence: GB)
  Receive Date: 20190131
  Receipt Date: 20190311
  Transmission Date: 20190417
  Serious: Yes (Other)
  Sender: FDA-Public Use
  Company Number: GB-AMREGENT-20190145

PATIENT
  Age: 28 Year
  Sex: Female
  Weight: 65 kg

DRUGS (3)
  1. MULTIVITAMIN (VITAMINS NOS) [Concomitant]
     Active Substance: VITAMINS
     Dosage: UNKNOWN
     Route: 065
  2. FERINJECT [Suspect]
     Active Substance: FERRIC CARBOXYMALTOSE
     Dosage: 1000 MG
     Route: 041
     Dates: start: 20190116, end: 20190116
  3. SOIL BASED PROBIOTICS (PROBIOTICS NOS) [Concomitant]
     Dosage: UNKNOWN
     Route: 065

REACTIONS (7)
  - Circulatory collapse [Unknown]
  - Hyporesponsive to stimuli [Unknown]
  - Chest discomfort [Recovered/Resolved]
  - Administration site irritation [Recovered/Resolved]
  - Loss of consciousness [Unknown]
  - Overdose [Unknown]
  - Dizziness [Recovered/Resolved]

NARRATIVE: CASE EVENT DATE: 201901
